FAERS Safety Report 26144186 (Version 1)
Quarter: 2025Q4

REPORT INFORMATION
  Report Type: Spontaneous
  Country: EU (occurrence: EU)
  Receive Date: 20251211
  Receipt Date: 20251211
  Transmission Date: 20260117
  Serious: Yes (Hospitalization)
  Sender: RANBAXY
  Company Number: EU-AFSSAPS-PA2025000567

PATIENT
  Age: 66 Year
  Sex: Female
  Weight: 53.2 kg

DRUGS (10)
  1. ACETAMINOPHEN [Suspect]
     Active Substance: ACETAMINOPHEN
     Indication: Antipyresis
     Dosage: 1 DOSAGE FORM, 1DOSE/ASNECESSA
     Route: 048
     Dates: start: 20250518
  2. CASPOFUNGIN [Suspect]
     Active Substance: CASPOFUNGIN
     Indication: Antibiotic therapy
     Dosage: 70 MILLIGRAM, DAILY
     Route: 042
     Dates: start: 20250518
  3. LINEZOLID [Suspect]
     Active Substance: LINEZOLID
     Indication: Febrile bone marrow aplasia
     Dosage: 1200 MILLIGRAM, DAILY
     Route: 065
     Dates: start: 20250520, end: 20250524
  4. LINEZOLID [Suspect]
     Active Substance: LINEZOLID
     Dosage: 600MG X2/J
     Route: 065
     Dates: start: 20250528
  5. VIDAZA [Suspect]
     Active Substance: AZACITIDINE
     Indication: Acute myeloid leukaemia
     Dosage: 115 MILLIGRAM, DAILY
     Route: 058
     Dates: start: 20250520, end: 20250526
  6. ONDANSETRON [Suspect]
     Active Substance: ONDANSETRON
     Indication: Prophylaxis of nausea and vomiting
     Dosage: 16 MILLIGRAM, DAILY
     Route: 042
     Dates: start: 20250520, end: 20250526
  7. HYDREA [Suspect]
     Active Substance: HYDROXYUREA
     Indication: Acute myeloid leukaemia
     Dosage: 6 DOSAGE FORM, DAILY
     Route: 048
     Dates: start: 20250516, end: 20250522
  8. MEROPENEM [Suspect]
     Active Substance: MEROPENEM
     Indication: Antibiotic therapy
     Dosage: 70 MILLIGRAM, DAILY
     Route: 042
     Dates: start: 20250518
  9. IOMERON [Suspect]
     Active Substance: IOMEPROL
     Indication: Imaging procedure
     Dosage: 1 DOSAGE FORM
     Route: 051
     Dates: start: 20250516, end: 20250516
  10. IOMERON [Suspect]
     Active Substance: IOMEPROL
     Dosage: 1 DOSAGE FORM
     Route: 051
     Dates: start: 20250519, end: 20250519

REACTIONS (1)
  - Rash maculo-papular [Recovering/Resolving]

NARRATIVE: CASE EVENT DATE: 20250522
